FAERS Safety Report 4476749-1 (Version None)
Quarter: 2004Q4

REPORT INFORMATION
  Report Type: 
  Country: None (occurrence: None)
  Receive Date: 20041013
  Receipt Date: 20040928
  Transmission Date: 20050328
  Serious: Yes (Other)
  Sender: FDA-Public Use
  Company Number: USA040979484

PATIENT
  Age: 65 Year
  Sex: Male

DRUGS (3)
  1. HUMALOG [Suspect]
     Dates: start: 19940101
  2. HUMULIN L [Suspect]
     Dosage: 40 U DAY
     Dates: start: 19470101
  3. HUMULIN R [Suspect]

REACTIONS (6)
  - BLINDNESS [None]
  - BLOOD GLUCOSE FLUCTUATION [None]
  - CATARACT [None]
  - EYE LASER SURGERY [None]
  - PHARMACEUTICAL PRODUCT COMPLAINT [None]
  - RETINAL DETACHMENT [None]
